FAERS Safety Report 4375861-5 (Version None)
Quarter: 2004Q2

REPORT INFORMATION
  Report Type: 
  Country: None (occurrence: None)
  Receive Date: 20040607
  Receipt Date: 20040525
  Transmission Date: 20050107
  Serious: Yes (Hospitalization)
  Sender: FDA-Public Use
  Company Number: FR-JNJFOC-20040502491

PATIENT
  Age: 74 Year
  Sex: Male
  Weight: 80 kg

DRUGS (13)
  1. HALDOL [Suspect]
     Indication: AGITATION
     Dosage: ORAL
     Route: 048
     Dates: start: 20040220, end: 20040325
  2. HALDOL [Suspect]
     Indication: CONFUSIONAL STATE
     Dosage: ORAL
     Route: 048
     Dates: start: 20040220, end: 20040325
  3. HALDOL [Suspect]
     Indication: DELUSION
     Dosage: ORAL
     Route: 048
     Dates: start: 20040220, end: 20040325
  4. HALDOL [Suspect]
     Indication: HALLUCINATION, VISUAL
     Dosage: ORAL
     Route: 048
     Dates: start: 20040220, end: 20040325
  5. GLYBURIDE [Suspect]
     Dosage: ORAL
     Route: 048
     Dates: end: 20040325
  6. SINTROM [Suspect]
     Indication: PHLEBITIS
     Dosage: ORAL
     Route: 048
     Dates: start: 20040315
  7. CISPLATIN [Suspect]
     Indication: PLEURAL MESOTHELIOMA
     Dosage: 140 MG, IN 1 DAY, INTRAVENOUS; SEE IMAGE
     Route: 042
     Dates: start: 20040217, end: 20040217
  8. CISPLATIN [Suspect]
     Indication: PLEURAL MESOTHELIOMA
     Dosage: 140 MG, IN 1 DAY, INTRAVENOUS; SEE IMAGE
     Route: 042
     Dates: start: 20040330, end: 20040330
  9. CISPLATIN [Suspect]
     Indication: PLEURAL MESOTHELIOMA
     Dosage: 140 MG, IN 1 DAY, INTRAVENOUS; SEE IMAGE
     Route: 042
     Dates: start: 20040409, end: 20040409
  10. MORPHINE SULFATE [Suspect]
     Dosage: ORAL
     Route: 048
     Dates: start: 20040323
  11. ALIMTA [Suspect]
     Indication: PLEURAL MESOTHELIOMA
     Dosage: 950 MG, IN 1 DAY, INTRAVENOUS; SEE IMAGE
     Dates: start: 20040217, end: 20040217
  12. ALIMTA [Suspect]
     Indication: PLEURAL MESOTHELIOMA
     Dosage: 950 MG, IN 1 DAY, INTRAVENOUS; SEE IMAGE
     Dates: start: 20040330, end: 20040330
  13. ALIMTA [Suspect]
     Indication: PLEURAL MESOTHELIOMA
     Dosage: 950 MG, IN 1 DAY, INTRAVENOUS; SEE IMAGE
     Dates: start: 20040409, end: 20040409

REACTIONS (2)
  - CONVULSION [None]
  - DRUG INTERACTION [None]
